FAERS Safety Report 9459156 (Version 1)
Quarter: 2013Q3

REPORT INFORMATION
  Report Type: Spontaneous
  Country: US (occurrence: US)
  Receive Date: 20130814
  Receipt Date: 20130814
  Transmission Date: 20140515
  Serious: No
  Sender: FDA-Public Use
  Company Number: US-009507513-2010SP062102

PATIENT
  Age: 36 Year
  Sex: Female

DRUGS (3)
  1. NUVARING [Suspect]
     Dosage: UNK UNK, QM
     Route: 067
     Dates: start: 201011
  2. LEVOTHYROXINE SODIUM [Concomitant]
  3. TERBINAFINE HYDROCHLORIDE [Concomitant]

REACTIONS (1)
  - Device expulsion [Unknown]
